FAERS Safety Report 10704106 (Version 1)
Quarter: 2015Q1

REPORT INFORMATION
  Report Type: Spontaneous
  Country: US (occurrence: None)
  Receive Date: 20150109
  Receipt Date: 20150109
  Transmission Date: 20150721
  Serious: No
  Sender: FDA-Public Use
  Company Number: None

PATIENT
  Age: 48 Year
  Sex: Female
  Weight: 111.8 kg

DRUGS (1)
  1. MORPHINE 4 MG C/J HOSPIRA [Suspect]
     Active Substance: MORPHINE
     Indication: ABDOMINAL PAIN
     Route: 042
     Dates: start: 20141203

REACTIONS (1)
  - Chest pain [None]

NARRATIVE: CASE EVENT DATE: 20141203
